FAERS Safety Report 12363728 (Version 1)
Quarter: 2016Q2

REPORT INFORMATION
  Report Type: Spontaneous
  Country: US (occurrence: None)
  Receive Date: 20160512
  Receipt Date: 20160512
  Transmission Date: 20160815
  Serious: No
  Sender: FDA-Public Use
  Company Number: None

PATIENT
  Age: 52 Year
  Sex: Female

DRUGS (1)
  1. VANCOMYCIN 1GRAM FRESENIUS KABI USA [Suspect]
     Active Substance: VANCOMYCIN
     Indication: EXTRADURAL ABSCESS
     Route: 042
     Dates: start: 20160422, end: 20160429

REACTIONS (4)
  - Rash [None]
  - Eye swelling [None]
  - Peripheral swelling [None]
  - Rash pruritic [None]

NARRATIVE: CASE EVENT DATE: 20160428
